FAERS Safety Report 5780295-2 (Version None)
Quarter: 2008Q2

REPORT INFORMATION
  Report Type: 
  Country: None (occurrence: None)
  Receive Date: 20080620
  Receipt Date: 20080613
  Transmission Date: 20081010
  Serious: Yes (Other)
  Sender: FDA-Public Use
  Company Number: BE-JNJFOC-20080601579

PATIENT
  Sex: Male
  Weight: 73 kg

DRUGS (7)
  1. REMICADE [Suspect]
     Route: 042
  2. REMICADE [Suspect]
     Route: 042
  3. REMICADE [Suspect]
     Route: 042
  4. REMICADE [Suspect]
     Indication: CROHN'S DISEASE
     Route: 042
  5. FOLIC ACID [Concomitant]
     Indication: VITAMIN SUPPLEMENTATION
  6. COLITOFALK [Concomitant]
  7. EMTHEXATE [Concomitant]
     Indication: CROHN'S DISEASE
     Route: 058

REACTIONS (4)
  - ARTHRALGIA [None]
  - MYALGIA [None]
  - PYREXIA [None]
  - RECTAL CANCER [None]
